FAERS Safety Report 20567613 (Version 1)
Quarter: 2022Q1

REPORT INFORMATION
  Report Type: Spontaneous
  Country: US (occurrence: US)
  Receive Date: 20220308
  Receipt Date: 20220308
  Transmission Date: 20220423
  Serious: No
  Sender: FDA-Public Use
  Company Number: US-PFIZER INC-202200320912

PATIENT
  Age: 69 Year
  Sex: Female
  Weight: 44.45 kg

DRUGS (3)
  1. PROCARDIA XL [Suspect]
     Active Substance: NIFEDIPINE
     Indication: Hypertension
     Dosage: 30 MG, 2X/DAY
     Route: 048
  2. PROCARDIA XL [Suspect]
     Active Substance: NIFEDIPINE
     Dosage: 30 MG, 1X/DAY
     Route: 048
  3. PROCARDIA XL [Suspect]
     Active Substance: NIFEDIPINE
     Dosage: 30 MG, AS NEEDED (IF THE BLOOD PRESSURE IS 145 OR HIGHER)

REACTIONS (5)
  - Intentional product misuse [Unknown]
  - Hypertension [Unknown]
  - Vision blurred [Unknown]
  - Palpitations [Unknown]
  - Dizziness [Unknown]
